FAERS Safety Report 16720321 (Version 1)
Quarter: 2019Q3

REPORT INFORMATION
  Report Type: Spontaneous
  Country: FR (occurrence: FR)
  Receive Date: 20190820
  Receipt Date: 20190820
  Transmission Date: 20191005
  Serious: Yes (Hospitalization)
  Sender: FDA-Public Use
  Company Number: FR-MYLANLABS-2019M1076602

PATIENT
  Age: 85 Year
  Sex: Female
  Weight: 98 kg

DRUGS (15)
  1. CODOLIPRANE [Suspect]
     Active Substance: ACETAMINOPHEN\CODEINE PHOSPHATE
     Indication: PRODUCT USED FOR UNKNOWN INDICATION
     Dosage: UNK
     Route: 048
     Dates: start: 20070126, end: 20070201
  2. OMEPRAZOLE. [Suspect]
     Active Substance: OMEPRAZOLE
     Indication: PRODUCT USED FOR UNKNOWN INDICATION
     Dosage: 20 MILLIGRAM, QD
     Route: 048
  3. NAFTILUX [Concomitant]
     Active Substance: NAFRONYL OXALATE
     Dosage: 400 MILLIGRAM, QD
     Route: 048
     Dates: end: 20070201
  4. UMULINE [Concomitant]
     Active Substance: INSULIN HUMAN
     Dosage: 36 INTERNATIONAL UNIT, QD
     Route: 058
  5. NOVONORM [Concomitant]
     Active Substance: REPAGLINIDE
     Dosage: 1 MILLIGRAM, QD
     Route: 048
  6. LOXEN                              /00639802/ [Concomitant]
     Active Substance: NICARDIPINE HYDROCHLORIDE
     Dosage: 50 MILLIGRAM, QD
     Route: 048
     Dates: end: 20070201
  7. ASPEGIC                            /00002703/ [Concomitant]
     Active Substance: ASPIRIN DL-LYSINE
     Dosage: 250 MILLIGRAM, QD
     Route: 048
  8. FORTZAAR [Suspect]
     Active Substance: HYDROCHLOROTHIAZIDE\LOSARTAN POTASSIUM
     Indication: ESSENTIAL HYPERTENSION
     Dosage: 1 DOSAGE FORM, QD
     Route: 048
  9. DAFALGAN [Concomitant]
     Active Substance: ACETAMINOPHEN
     Dosage: 500 MILLIGRAM, QD
     Route: 048
  10. EUPRESSYL                          /00631801/ [Suspect]
     Active Substance: URAPIDIL
     Indication: ESSENTIAL HYPERTENSION
     Dosage: 90 MILLIGRAM, QD
     Route: 048
  11. NEURONTIN [Suspect]
     Active Substance: GABAPENTIN
     Indication: PRODUCT USED FOR UNKNOWN INDICATION
     Dosage: 600 MILLIGRAM
     Route: 048
  12. MIRTAZAPINE. [Concomitant]
     Active Substance: MIRTAZAPINE
     Dosage: UNK
     Route: 048
     Dates: end: 20070201
  13. MOXONIDINE [Concomitant]
     Active Substance: MOXONIDINE
     Dosage: 0.2 MILLIGRAM, QD
     Route: 048
     Dates: end: 20070201
  14. TEMESTA                            /00273201/ [Suspect]
     Active Substance: LORAZEPAM
     Indication: PRODUCT USED FOR UNKNOWN INDICATION
     Dosage: 1 MILLIGRAM, QD
     Route: 048
     Dates: end: 20070201
  15. HUMALOG [Concomitant]
     Active Substance: INSULIN LISPRO
     Dosage: DAILY DOSE 16 IU
     Route: 058

REACTIONS (2)
  - Fall [Recovering/Resolving]
  - Confusional state [Recovering/Resolving]

NARRATIVE: CASE EVENT DATE: 20070201
